FAERS Safety Report 22399360 (Version 1)
Quarter: 2023Q2

REPORT INFORMATION
  Report Type: Spontaneous
  Country: QA (occurrence: QA)
  Receive Date: 20230602
  Receipt Date: 20230602
  Transmission Date: 20230722
  Serious: Yes (Other)
  Sender: FDA-Public Use
  Company Number: QA-SUN PHARMACEUTICAL INDUSTRIES LTD-2023RR-390236

PATIENT
  Age: 66 Year
  Sex: Male

DRUGS (7)
  1. IMATINIB [Suspect]
     Active Substance: IMATINIB
     Indication: Tumour lysis syndrome
     Dosage: 600 MILLIGRAM, DAILY
  2. DASATINIB [Suspect]
     Active Substance: DASATINIB
     Indication: Tumour lysis syndrome
     Dosage: 50 MILLIGRAM, DAILY
     Route: 065
  3. DASATINIB [Suspect]
     Active Substance: DASATINIB
     Dosage: 100 MILLIGRAM, DAILY
     Route: 065
  4. DASATINIB [Suspect]
     Active Substance: DASATINIB
     Dosage: 140 MILLIGRAM, DAILY
     Route: 065
  5. VINCRISTINE [Suspect]
     Active Substance: VINCRISTINE
     Indication: Tumour lysis syndrome
     Dosage: ONE DOSE
     Route: 065
  6. IDARUBICIN [Suspect]
     Active Substance: IDARUBICIN
     Indication: Tumour lysis syndrome
     Dosage: ONE DOSE
     Route: 065
  7. CYCLOPHOSPHAMIDE [Suspect]
     Active Substance: CYCLOPHOSPHAMIDE
     Indication: Tumour lysis syndrome
     Dosage: ONE DOSE
     Route: 065

REACTIONS (3)
  - Fluid retention [Unknown]
  - Drug intolerance [Unknown]
  - Drug ineffective [Unknown]
